FAERS Safety Report 4627558-1 (Version None)
Quarter: 2005Q2

REPORT INFORMATION
  Report Type: 
  Country: None (occurrence: None)
  Receive Date: 20050405
  Receipt Date: 20050321
  Transmission Date: 20051028
  Serious: Yes (Disabling, Other)
  Sender: FDA-Public Use
  Company Number: 2005047768

PATIENT

DRUGS (1)
  1. AROMASIN [Suspect]
     Indication: ILL-DEFINED DISORDER
     Dates: start: 20030101

REACTIONS (4)
  - ACTIVITIES OF DAILY LIVING IMPAIRED [None]
  - DISEASE PROGRESSION [None]
  - OEDEMA PERIPHERAL [None]
  - SKIN FISSURES [None]
